FAERS Safety Report 4479719-2 (Version None)
Quarter: 2004Q4

REPORT INFORMATION
  Report Type: 
  Country: None (occurrence: None)
  Receive Date: 20041020
  Receipt Date: 20041012
  Transmission Date: 20050328
  Serious: Yes (Other)
  Sender: FDA-Public Use
  Company Number: US-BRISTOL-MYERS SQUIBB COMPANY-12729786

PATIENT
  Age: 57 Year
  Sex: Female

DRUGS (7)
  1. SERZONE [Suspect]
     Dates: start: 19970401, end: 20020301
  2. ESTRADIOL [Concomitant]
  3. LORCET-HD [Concomitant]
  4. VITAMIN B6 [Concomitant]
  5. MULTI-VITAMIN [Concomitant]
  6. AMBIEN [Concomitant]
  7. VIOXX [Concomitant]

REACTIONS (12)
  - ANTI-HBC IGG ANTIBODY POSITIVE [None]
  - ARTHRITIS [None]
  - FATIGUE [None]
  - HAEMATEMESIS [None]
  - HEPATITIS C [None]
  - HYPERGAMMAGLOBULINAEMIA [None]
  - MUSCULOSKELETAL STIFFNESS [None]
  - MYALGIA [None]
  - OEDEMA PERIPHERAL [None]
  - PAIN IN EXTREMITY [None]
  - RHEUMATOID FACTOR POSITIVE [None]
  - THROMBOCYTOPENIA [None]
